FAERS Safety Report 21656590 (Version 4)
Quarter: 2023Q1

REPORT INFORMATION
  Report Type: Report from Study
  Country: CA (occurrence: CA)
  Receive Date: 20221129
  Receipt Date: 20230207
  Transmission Date: 20230418
  Serious: Yes (Life-Threatening, Hospitalization, Other)
  Sender: FDA-Public Use
  Company Number: CA-JNJFOC-20221126180

PATIENT
  Age: 68 Year
  Sex: Male
  Weight: 79 kg

DRUGS (1)
  1. REMICADE [Suspect]
     Active Substance: INFLIXIMAB
     Indication: Psoriatic arthropathy
     Dosage: THE PATIENT HAD REBOOKED HIS INFUSION FOR 29/NOV/2022. V4: THERAPY START DATE: 03-MAY-2018
     Route: 041
     Dates: start: 20180403

REACTIONS (6)
  - Renal failure [Unknown]
  - Bone cancer [Unknown]
  - Metastases to bone [Unknown]
  - Prostate cancer [Unknown]
  - Abdominal pain [Unknown]
  - Off label use [Unknown]

NARRATIVE: CASE EVENT DATE: 20220101
